FAERS Safety Report 10045243 (Version 1)
Quarter: 2014Q1

REPORT INFORMATION
  Report Type: Spontaneous
  Country: GB (occurrence: GB)
  Receive Date: 20140328
  Receipt Date: 20140328
  Transmission Date: 20141002
  Serious: Yes (Disabling)
  Sender: FDA-Public Use
  Company Number: GB-WATSON-2014-05626

PATIENT
  Age: 7 Year
  Sex: Male
  Weight: 14 kg

DRUGS (1)
  1. DESMOPRESSIN [Suspect]
     Indication: ENURESIS
     Dosage: 200 MG, UNKNOWN
     Route: 065
     Dates: start: 20140214

REACTIONS (2)
  - Faecal incontinence [Recovered/Resolved]
  - Drug ineffective [Unknown]
